FAERS Safety Report 6092554-7 (Version None)
Quarter: 2009Q1

REPORT INFORMATION
  Report Type: 
  Country: None (occurrence: None)
  Receive Date: 20090225
  Receipt Date: 20090218
  Transmission Date: 20090719
  Serious: Yes (Hospitalization)
  Sender: FDA-Public Use
  Company Number: US-ELI_LILLY_AND_COMPANY-US200902004719

PATIENT
  Sex: Female
  Weight: 52.608 kg

DRUGS (3)
  1. HUMALOG [Suspect]
     Dosage: 1 U, AS NEEDED
     Dates: start: 19790101
  2. HUMULIN N [Suspect]
     Dosage: UNK, EACH MORNING
     Dates: start: 19790101
  3. HUMULIN N [Suspect]
     Dosage: UNK, EACH EVENING

REACTIONS (5)
  - ARTHRITIS [None]
  - ASTHENIA [None]
  - BLOOD GLUCOSE INCREASED [None]
  - DRUG INEFFECTIVE [None]
  - WEIGHT DECREASED [None]
